FAERS Safety Report 8390627-7 (Version None)
Quarter: 2012Q2

REPORT INFORMATION
  Report Type: 
  Country: None (occurrence: None)
  Receive Date: 20120529
  Receipt Date: 20120522
  Transmission Date: 20120825
  Serious: Yes (Hospitalization)
  Sender: FDA-Public Use
  Company Number: US-JNJFOC-20120517420

PATIENT
  Sex: Female
  Weight: 56.7 kg

DRUGS (2)
  1. FLEXERIL [Concomitant]
     Indication: NECK PAIN
     Dosage: 10MG/TABLET/10MG/AS  NEEDED/ORAL
     Route: 048
  2. ULTRAM [Suspect]
     Indication: NECK PAIN
     Dosage: 50 MG 1-2 TABLETS UP TO TWICE A DAY
     Route: 048

REACTIONS (2)
  - DRUG INEFFECTIVE [None]
  - INTERVERTEBRAL DISC OPERATION [None]
